FAERS Safety Report 7276490-6 (Version None)
Quarter: 2011Q1

REPORT INFORMATION
  Report Type: 
  Country: None (occurrence: None)
  Receive Date: 20110204
  Receipt Date: 20110125
  Transmission Date: 20110831
  Serious: Yes (Hospitalization, Other)
  Sender: FDA-Public Use
  Company Number: GB-WATSON-2011-01129

PATIENT
  Age: 43 Year
  Sex: Male

DRUGS (3)
  1. BOLDENONE UNDECANOATE (EQUIPOISE) [Suspect]
     Indication: DRUG ABUSE
     Dosage: UNK
     Route: 065
  2. TESTOSTERONE PROPIONATE (WATSON LABORATORIES) [Suspect]
     Indication: DRUG ABUSE
     Dosage: UNK
     Route: 065
  3. TRENBOLONE [Suspect]
     Indication: DRUG ABUSE
     Dosage: UNK
     Route: 065

REACTIONS (3)
  - TOXIC ENCEPHALOPATHY [None]
  - COMA [None]
  - DRUG ABUSE [None]
